FAERS Safety Report 20509929 (Version 2)
Quarter: 2022Q1

REPORT INFORMATION
  Report Type: Spontaneous
  Country: JP (occurrence: JP)
  Receive Date: 20220224
  Receipt Date: 20220315
  Transmission Date: 20220423
  Serious: Yes (Death, Hospitalization, Other)
  Sender: FDA-Public Use
  Company Number: JP-NOVARTISPH-NVSJ2022JP003490

PATIENT
  Age: 86 Year
  Sex: Female

DRUGS (1)
  1. ENTRESTO [Suspect]
     Active Substance: SACUBITRIL\VALSARTAN
     Indication: Cardiac failure
     Dosage: UNK
     Route: 048

REACTIONS (5)
  - Sepsis [Fatal]
  - Anaemia [Unknown]
  - Gastrointestinal haemorrhage [Unknown]
  - Gastrointestinal necrosis [Unknown]
  - Cerebral infarction [Unknown]
